FAERS Safety Report 12242686 (Version 1)
Quarter: 2016Q2

REPORT INFORMATION
  Report Type: Spontaneous
  Country: US (occurrence: US)
  Receive Date: 20160406
  Receipt Date: 20160406
  Transmission Date: 20160815
  Serious: No
  Sender: FDA-Public Use
  Company Number: US-BAYER-2016-065389

PATIENT
  Sex: Male

DRUGS (4)
  1. OMEGA 3 [Concomitant]
     Active Substance: OMEGA-3 FATTY ACIDS
  2. VITAMIN C [Concomitant]
     Active Substance: ASCORBIC ACID
  3. CLARITIN [Suspect]
     Active Substance: LORATADINE
  4. VITAMIN E [Concomitant]
     Active Substance: .ALPHA.-TOCOPHEROL

REACTIONS (1)
  - Somnolence [None]
